FAERS Safety Report 13516791 (Version 2)
Quarter: 2018Q1

REPORT INFORMATION
  Report Type: Spontaneous
  Country: IT (occurrence: IT)
  Receive Date: 20170505
  Receipt Date: 20180221
  Transmission Date: 20180508
  Serious: Yes (Other)
  Sender: FDA-Public Use
  Company Number: IT-ACCORD-050997

PATIENT
  Age: 68 Year
  Sex: Male
  Weight: 75 kg

DRUGS (3)
  1. CALCIO LEVOFOLINATO TEVA ITALIA S.R.L [Concomitant]
     Active Substance: LEVOLEUCOVORIN CALCIUM
     Indication: PREMEDICATION
     Dosage: STRENGTH: 100 MG
     Dates: start: 20161212, end: 20170130
  2. IRINOTECAN MYLAN GENERICS [Suspect]
     Active Substance: IRINOTECAN
     Indication: COLON NEOPLASM
     Dosage: STRENGTH: 20 MG/ML
     Dates: start: 20161212
  3. FLUOROURACILE AHCL ACCORD HEALTHCARE [Suspect]
     Active Substance: FLUOROURACIL SODIUM
     Indication: COLON NEOPLASM
     Dosage: STRENGTH: 50 MG/ML.?ALSO RECEIVED AT 756 MG DOSE
     Route: 042
     Dates: start: 20161212

REACTIONS (2)
  - Asthenia [Not Recovered/Not Resolved]
  - Myalgia [Not Recovered/Not Resolved]

NARRATIVE: CASE EVENT DATE: 20170130
